FAERS Safety Report 25476798 (Version 1)
Quarter: 2025Q2

REPORT INFORMATION
  Report Type: Spontaneous
  Country: US (occurrence: US)
  Receive Date: 20250625
  Receipt Date: 20250625
  Transmission Date: 20250716
  Serious: No
  Sender: ELI LILLY AND COMPANY
  Company Number: US-ELI_LILLY_AND_COMPANY-US202506020985

PATIENT
  Sex: Female

DRUGS (1)
  1. ZEPBOUND [Suspect]
     Active Substance: TIRZEPATIDE
     Indication: Product used for unknown indication
     Dosage: 2.5 MG, WEEKLY (1/W) (TAKING ONLY 25 UNITS OF ZEPBOUND FROM THE SAME VIAL)
     Route: 058
     Dates: start: 202506

REACTIONS (2)
  - Underdose [Unknown]
  - Nausea [Unknown]

NARRATIVE: CASE EVENT DATE: 20250601
